FAERS Safety Report 8007944-2 (Version None)
Quarter: 2011Q4

REPORT INFORMATION
  Report Type: 
  Country: None (occurrence: None)
  Receive Date: 20111227
  Receipt Date: 20111213
  Transmission Date: 20120403
  Serious: Yes (Other)
  Sender: FDA-Public Use
  Company Number: US-ELI_LILLY_AND_COMPANY-US201111005155

PATIENT
  Sex: Female
  Weight: 55.329 kg

DRUGS (8)
  1. FORTEO [Suspect]
     Indication: OSTEOPOROSIS
     Dosage: 20 UG, QD
     Dates: start: 20070124
  2. PRILOSEC [Concomitant]
     Dosage: 20 MG, UNK
  3. VITAMIN D [Concomitant]
  4. VITAMIN C [Concomitant]
  5. MULTI-VITAMIN [Concomitant]
  6. IMODIUM [Concomitant]
     Dosage: 2 MG, UNK
  7. RESTASIS [Concomitant]
  8. LOMOTIL [Concomitant]

REACTIONS (2)
  - BREAST NEOPLASM [None]
  - BREAST CANCER [None]
